FAERS Safety Report 9086639 (Version 1)
Quarter: 2013Q1

REPORT INFORMATION
  Report Type: Report from Study
  Country: US (occurrence: US)
  Receive Date: 20130131
  Receipt Date: 20130131
  Transmission Date: 20140127
  Serious: No
  Sender: FDA-Public Use
  Company Number: US-ABBOTT-12P-163-1001637-00

PATIENT
  Age: 68 Year
  Sex: Female
  Weight: 76.27 kg

DRUGS (10)
  1. HUMIRA [Suspect]
     Indication: RHEUMATOID ARTHRITIS
     Dosage: NOT DISCONTINUED THERAPY, BUT ON HOLD UNTIL EVENTS RESOLVE
     Dates: start: 200906, end: 20121008
  2. DIOVAN [Concomitant]
     Indication: HYPERTENSION
  3. SIMVASTATIN [Concomitant]
     Indication: BLOOD CHOLESTEROL INCREASED
  4. ZOLOFT [Concomitant]
     Indication: PRODUCT USED FOR UNKNOWN INDICATION
  5. HYDROCHLOROTHIAZIDE [Concomitant]
     Indication: PRODUCT USED FOR UNKNOWN INDICATION
     Dosage: WATER PILL
  6. ADDERALL [Concomitant]
     Indication: ATTENTION DEFICIT/HYPERACTIVITY DISORDER
  7. BIOTIN 5000 [Concomitant]
     Indication: NAIL DISORDER
  8. CALCIUM [Concomitant]
     Indication: PRODUCT USED FOR UNKNOWN INDICATION
  9. MULTIVITAMIN [Concomitant]
     Indication: PRODUCT USED FOR UNKNOWN INDICATION
  10. TYLENOL [Concomitant]
     Indication: HEADACHE

REACTIONS (4)
  - Cough [Recovering/Resolving]
  - Increased upper airway secretion [Recovering/Resolving]
  - Chest discomfort [Recovered/Resolved]
  - Chest discomfort [Recovered/Resolved]
